FAERS Safety Report 8383897-2 (Version None)
Quarter: 2012Q2

REPORT INFORMATION
  Report Type: 
  Country: None (occurrence: None)
  Receive Date: 20120524
  Receipt Date: 20111111
  Transmission Date: 20120825
  Serious: Yes (Hospitalization)
  Sender: FDA-Public Use
  Company Number: US-JNJFOC-20120514108

PATIENT
  Age: 56 Year
  Sex: Female
  Weight: 48.2 kg

DRUGS (24)
  1. NAPROXEN (ALEVE) [Suspect]
     Indication: PSORIATIC ARTHROPATHY
     Route: 048
     Dates: start: 20041001
  2. FISH OIL [Concomitant]
     Indication: MEDICAL DIET
     Route: 048
     Dates: start: 20091001
  3. COQ10 [Concomitant]
     Indication: MEDICAL DIET
     Route: 048
     Dates: start: 20090401
  4. FOLIC ACID [Concomitant]
     Indication: MEDICAL DIET
     Route: 048
     Dates: start: 19850601
  5. DIGESTIVE ENZYMES [Concomitant]
     Indication: MEDICAL DIET
     Route: 048
     Dates: start: 20110301
  6. IBUPROFEN [Suspect]
     Indication: BACK PAIN
     Dosage: AS NEEDED
     Route: 048
     Dates: start: 19800901
  7. UNKNOWN MEDICATION [Concomitant]
     Indication: MEDICAL DIET
     Route: 048
     Dates: start: 20111020
  8. PLACEBO [Suspect]
     Indication: PSORIASIS
     Route: 048
     Dates: start: 20110811
  9. PLACEBO [Suspect]
     Route: 048
  10. IODINE [Concomitant]
     Indication: MEDICAL DIET
     Route: 048
     Dates: start: 20110301
  11. ASCORBIC ACID [Concomitant]
     Indication: MEDICAL DIET
     Route: 048
     Dates: start: 19850601
  12. BLINDED STUDY MEDICATION [Suspect]
     Route: 048
  13. VITAMIN B-12 [Concomitant]
     Indication: MEDICAL DIET
     Route: 048
     Dates: start: 20070201
  14. KELP [Concomitant]
     Indication: MEDICAL DIET
     Route: 048
     Dates: start: 20110301
  15. BLINDED STUDY MEDICATION [Suspect]
     Indication: PSORIASIS
     Route: 048
     Dates: start: 20110811
  16. UNKNOWN MEDICATION [Suspect]
     Route: 048
  17. BIOTIN [Concomitant]
     Indication: MEDICAL DIET
     Route: 048
     Dates: start: 20090101
  18. NIASPAN [Concomitant]
     Indication: LIPID METABOLISM DISORDER
     Route: 048
     Dates: start: 20111013
  19. UNKNOWN MEDICATION [Suspect]
     Indication: PSORIASIS
     Route: 048
     Dates: start: 20110811
  20. VITAMIN B6 [Concomitant]
     Indication: MEDICAL DIET
     Route: 048
     Dates: start: 19850601
  21. RED YEAST RICE EXTRACT [Concomitant]
     Indication: MEDICAL DIET
     Route: 048
     Dates: start: 20100601
  22. PROBIOTICS [Concomitant]
     Indication: MEDICAL DIET
     Route: 048
     Dates: start: 20081101
  23. VITAMIN D [Concomitant]
     Indication: MEDICAL DIET
     Route: 048
     Dates: start: 20090101
  24. BIOIDENTICAL HORMONE [Concomitant]
     Indication: HORMONE REPLACEMENT THERAPY
     Route: 061
     Dates: start: 20111020

REACTIONS (7)
  - OESOPHAGEAL ULCER [None]
  - DUODENITIS [None]
  - ULCER HAEMORRHAGE [None]
  - DIARRHOEA HAEMORRHAGIC [None]
  - ANAEMIA [None]
  - HIATUS HERNIA [None]
  - GASTRITIS [None]
